FAERS Safety Report 23330150 (Version 7)
Quarter: 2024Q3

REPORT INFORMATION
  Report Type: Report from Study
  Country: JP (occurrence: JP)
  Receive Date: 20231222
  Receipt Date: 20240924
  Transmission Date: 20241017
  Serious: Yes (Hospitalization)
  Sender: ROCHE
  Company Number: JP-CHUGAI-2023044254AA

PATIENT
  Age: 18 Year
  Sex: Female
  Weight: 43.2 kg

DRUGS (5)
  1. EVRYSDI [Suspect]
     Active Substance: RISDIPLAM
     Indication: Spinal muscular atrophy
     Dosage: POWDER FOR SYRUP 60MG
     Route: 065
     Dates: start: 20230513, end: 20230919
  2. EVRYSDI [Suspect]
     Active Substance: RISDIPLAM
     Dosage: POWDER FOR SYRUP
     Route: 065
     Dates: start: 20231027, end: 20240517
  3. TAMIFLU [Suspect]
     Active Substance: OSELTAMIVIR PHOSPHATE
     Indication: Influenza
     Dosage: UNK
     Route: 065
  4. MIYA-BM [Concomitant]
     Active Substance: CLOSTRIDIUM BUTYRICUM SPORES STRAIN M-55
     Dosage: 1 GRAM, TID
     Route: 050
     Dates: start: 20231027, end: 20231226
  5. BUTYLSCOPOLAMINE BROMIDE [Concomitant]
     Active Substance: BUTYLSCOPOLAMINE BROMIDE
     Dosage: 10 MILLIGRAM, BID
     Route: 048

REACTIONS (5)
  - Subileus [Recovered/Resolved]
  - Diarrhoea [Recovered/Resolved]
  - Pneumonia aspiration [Recovered/Resolved]
  - Influenza [Recovered/Resolved]
  - Gastrooesophageal reflux disease [Recovered/Resolved]

NARRATIVE: CASE EVENT DATE: 20230513
